FAERS Safety Report 7860173-5 (Version None)
Quarter: 2011Q4

REPORT INFORMATION
  Report Type: 
  Country: None (occurrence: None)
  Receive Date: 20111027
  Receipt Date: 20111018
  Transmission Date: 20120403
  Serious: Yes (Hospitalization, Other)
  Sender: FDA-Public Use
  Company Number: US-ASTRAZENECA-2011SE63016

PATIENT
  Age: 58 Year
  Sex: Female
  Weight: 83.9 kg

DRUGS (8)
  1. NEXIUM [Suspect]
     Indication: HYPOTONIA
     Route: 048
     Dates: start: 20050101
  2. LISINOPRIL [Concomitant]
     Indication: HYPERTENSION
     Route: 048
  3. OXYCODONE HCL [Concomitant]
     Indication: PAIN
     Route: 048
  4. GLUCOSAMINE [Concomitant]
     Indication: ARTHRALGIA
     Route: 048
  5. SIMVALTA [Concomitant]
     Indication: FIBROMYALGIA
     Route: 048
  6. VICODIN [Concomitant]
     Indication: PAIN
     Dosage: 5/500 MG BID
     Route: 048
  7. FISH OIL [Concomitant]
     Indication: MEDICAL DIET
     Dosage: DAILY
     Route: 048
  8. CARVEDILOL [Concomitant]
     Indication: RESTLESS LEGS SYNDROME
     Dosage: DAILY
     Route: 048

REACTIONS (7)
  - DYSPEPSIA [None]
  - OFF LABEL USE [None]
  - ABDOMINAL DISCOMFORT [None]
  - HEADACHE [None]
  - DRUG DOSE OMISSION [None]
  - ARTHRITIS [None]
  - MALAISE [None]
